FAERS Safety Report 10664648 (Version 1)
Quarter: 2014Q4

REPORT INFORMATION
  Report Type: Spontaneous
  Country: US (occurrence: None)
  Receive Date: 20141205
  Receipt Date: 20141205
  Transmission Date: 20150529
  Serious: No
  Sender: FDA-Public Use
  Company Number: 163-POMAL-14073005

PATIENT
  Age: 62 Year
  Sex: Male
  Weight: 106.6 kg

DRUGS (17)
  1. BACTRIM (BACTRIM) [Concomitant]
  2. OXYCODONE (OXYCODONE) [Concomitant]
     Active Substance: OXYCODONE
  3. FLUOXETINE (FLUOXETINE) [Concomitant]
     Active Substance: FLUOXETINE HYDROCHLORIDE
  4. NASACOART (TRIAMCINOLONE ACETONIDE) [Concomitant]
  5. ACYCLOVIR (ACICLOVIR) [Concomitant]
  6. VITAMIN B6 [Concomitant]
     Active Substance: PYRIDOXINE HYDROCHLORIDE
  7. POMALYST [Suspect]
     Active Substance: POMALIDOMIDE
     Indication: PLASMA CELL MYELOMA
     Route: 048
     Dates: start: 201304
  8. FOLIC ACID (FOLIC ACID) [Concomitant]
     Active Substance: FOLIC ACID
  9. VITAMIN B12 [Concomitant]
     Active Substance: CYANOCOBALAMIN
  10. FLUTICASONE PROPIONATE (FLUTICASONE PROPIONATE) [Concomitant]
  11. LISINOPRIL (LISINOPRIL) [Concomitant]
     Active Substance: LISINOPRIL
  12. LORAZEPAM (LORAZEPAM) [Concomitant]
     Active Substance: LORAZEPAM
  13. ASPIRIN (TABLETS) [Concomitant]
  14. DEXAMETHASONE (DEXAMETHASONE) [Concomitant]
     Active Substance: DEXAMETHASONE
  15. ATENOLOL (ATENOLOL) [Concomitant]
     Active Substance: ATENOLOL
  16. IBUPROFEN (IBUPROFEN) [Concomitant]
     Active Substance: IBUPROFEN
  17. CYCLOBENZAPRINE (CYCLOBENZAPRINE) [Concomitant]
     Active Substance: CYCLOBENZAPRINE

REACTIONS (2)
  - Ear infection [None]
  - Upper respiratory tract infection [None]

NARRATIVE: CASE EVENT DATE: 201407
